FAERS Safety Report 20198102 (Version 2)
Quarter: 2021Q4

REPORT INFORMATION
  Report Type: Spontaneous
  Country: US (occurrence: US)
  Receive Date: 20211217
  Receipt Date: 20211217
  Transmission Date: 20220303
  Serious: No
  Sender: FDA-Public Use
  Company Number: US-ALLERGAN-2137783US

PATIENT
  Sex: Female

DRUGS (2)
  1. PREDNISOLONE ACETATE [Suspect]
     Active Substance: PREDNISOLONE ACETATE
     Indication: Retinal oedema
     Dosage: 1 GTT, QHS
     Dates: end: 20210720
  2. PRED FORTE [Suspect]
     Active Substance: PREDNISOLONE ACETATE
     Indication: Retinal oedema
     Dosage: 1 GTT, QHS
     Dates: start: 20210720

REACTIONS (6)
  - Eye discharge [Recovering/Resolving]
  - Product residue present [Recovering/Resolving]
  - Ocular discomfort [Recovering/Resolving]
  - Off label use [Unknown]
  - Foreign body sensation in eyes [Unknown]
  - Eye irritation [Recovering/Resolving]
